FAERS Safety Report 11057423 (Version 2)
Quarter: 2015Q2

REPORT INFORMATION
  Report Type: Report from Study
  Country: EG (occurrence: EG)
  Receive Date: 20150422
  Receipt Date: 20150430
  Transmission Date: 20150821
  Serious: Yes (Death)
  Sender: FDA-Public Use
  Company Number: EG-009507513-1504EGY020598

PATIENT

DRUGS (2)
  1. EPTIFIBATIDE [Suspect]
     Active Substance: EPTIFIBATIDE
     Indication: PLATELET AGGREGATION INHIBITION
     Dosage: TWO BOLUSES 10 MIN APART (EACH 180 MICROGRAM PER KILOGRAM)
     Route: 042
  2. EPTIFIBATIDE [Suspect]
     Active Substance: EPTIFIBATIDE
     Dosage: 2 MICROGRAM PER KILOGRAM PER MINUTE FOR MAINTENANCE
     Route: 042

REACTIONS (1)
  - Sudden cardiac death [Fatal]
